FAERS Safety Report 5194094-6 (Version None)
Quarter: 2006Q4

REPORT INFORMATION
  Report Type: 
  Country: None (occurrence: None)
  Receive Date: 20061228
  Receipt Date: 20060831
  Transmission Date: 20070319
  Serious: Yes (Other)
  Sender: FDA-Public Use
  Company Number: US-ELI_LILLY_AND_COMPANY-US200609000117

PATIENT
  Age: 77 Year
  Sex: Female
  Weight: 54.875 kg

DRUGS (24)
  1. FORTEO [Suspect]
     Indication: OSTEOPOROSIS
     Dosage: 20 UG, DAILY (1/D)
     Dates: start: 20060707, end: 20060804
  2. FORTEO [Suspect]
     Dosage: UNK, QOD
     Dates: start: 20060801
  3. ASPIRIN [Concomitant]
     Dosage: 110 UNK, UNK
  4. LOTEMAX [Concomitant]
     Dosage: 0.5 UNK, UNK
  5. LEXAPRO                                 /USA/ [Concomitant]
     Dosage: 10 MG, UNK
  6. DETROL [Concomitant]
  7. SEROQUEL [Concomitant]
     Dosage: 200 MG, UNK
  8. CELEBREX [Concomitant]
     Indication: ARTHRITIS
     Dosage: 200 MG, UNK
  9. ATENOLOL [Concomitant]
     Dosage: 12.5 MG, DAILY (1/D)
  10. VERAPAMIL [Concomitant]
     Dosage: 180 MG, 2/D
  11. PLAQUENIL [Concomitant]
     Dosage: 400 MG, DAILY (1/D)
  12. VITAMIN D [Concomitant]
     Dosage: 50000 U, WEEKLY (1/W)
     Dates: start: 20060701
  13. VITAMIN D [Concomitant]
     Dosage: 5000 UNK, WEEKLY (1/W)
  14. CALCIUM [Concomitant]
  15. PREMARIN [Concomitant]
  16. PROVERA [Concomitant]
  17. GLUCOSAMINE [Concomitant]
     Dosage: 6 UNK, DAILY (1/D)
  18. TESTOSTERONE [Concomitant]
  19. CITRACAL [Concomitant]
  20. ASCORBIC ACID [Concomitant]
  21. VITAMIN B COMPLEX CAP [Concomitant]
  22. TUSSIN ^LEINER^ [Concomitant]
  23. MAGNESIUM OXIDE [Concomitant]
     Dosage: 400 MG, UNK
  24. BONIVA [Concomitant]

REACTIONS (22)
  - AGITATION [None]
  - BACTERIAL INFECTION [None]
  - BELLIGERENCE [None]
  - BLOOD CHLORIDE DECREASED [None]
  - BLOOD OSMOLARITY DECREASED [None]
  - CONDITION AGGRAVATED [None]
  - CONSTIPATION [None]
  - CULTURE POSITIVE [None]
  - DELIRIUM [None]
  - DEPRESSION [None]
  - DRUG INTOLERANCE [None]
  - DRY MOUTH [None]
  - EMOTIONAL DISTRESS [None]
  - HYPONATRAEMIA [None]
  - JOINT SWELLING [None]
  - MENTAL STATUS CHANGES [None]
  - NEGATIVE THOUGHTS [None]
  - PITTING OEDEMA [None]
  - POLYDIPSIA [None]
  - SOMNOLENCE [None]
  - URINE OSMOLARITY DECREASED [None]
  - WEIGHT DECREASED [None]
